FAERS Safety Report 4952932-3 (Version None)
Quarter: 2006Q1

REPORT INFORMATION
  Report Type: 
  Country: None (occurrence: None)
  Receive Date: 20060324
  Receipt Date: 20060228
  Transmission Date: 20060701
  Serious: Yes (Other)
  Sender: FDA-Public Use
  Company Number: PHEH2006US02721

PATIENT
  Age: 71 Year
  Sex: Female

DRUGS (8)
  1. VALIUM [Concomitant]
     Dosage: UNK, PRN
  2. AMBIEN [Concomitant]
     Dosage: UNK, PRN
  3. ANTIBIOTICS [Suspect]
  4. ZOMETA [Suspect]
     Indication: OSTEOPOROSIS
     Dosage: UNK, ONCE YEARLY
     Dates: start: 20040201
  5. SYNTHROID [Concomitant]
  6. OXYCONTIN [Concomitant]
  7. FORTEO [Concomitant]
  8. COZAAR [Concomitant]
     Dates: start: 20030101

REACTIONS (19)
  - BONE DEBRIDEMENT [None]
  - BONE DISORDER [None]
  - BONE SWELLING [None]
  - DENTAL TREATMENT [None]
  - DRY SOCKET [None]
  - ENDODONTIC PROCEDURE [None]
  - ERYTHEMA [None]
  - IMPAIRED HEALING [None]
  - LOCAL SWELLING [None]
  - ORAL SOFT TISSUE DISORDER [None]
  - OSTEOMYELITIS [None]
  - PAIN [None]
  - PAIN IN JAW [None]
  - PURULENCE [None]
  - SOFT TISSUE INFECTION [None]
  - SUTURE INSERTION [None]
  - TOOTH EXTRACTION [None]
  - TOOTH FRACTURE [None]
  - TOOTH LOSS [None]
